FAERS Safety Report 9406917 (Version 3)
Quarter: 2013Q3

REPORT INFORMATION
  Report Type: Report from Study
  Country: BE (occurrence: BE)
  Receive Date: 20130718
  Receipt Date: 20130804
  Transmission Date: 20140515
  Serious: Yes (Hospitalization)
  Sender: FDA-Public Use
  Company Number: BE-ROCHE-1248776

PATIENT
  Age: 56 Year
  Sex: Female
  Weight: 82 kg

DRUGS (5)
  1. TRASTUZUMAB [Suspect]
     Indication: BREAST CANCER
     Dosage: DATE OF LAST DOSE PRIOR TO SAE 06/JUL/2011
     Route: 042
     Dates: start: 20100722
  2. TRASTUZUMAB [Suspect]
     Dosage: DATE OF LAST DOSE PRIOR TO SAE 06/JUL/2011
     Route: 042
  3. CARBOPLATIN [Suspect]
     Indication: BREAST CANCER
     Dosage: DATE OF LAST DOSE PRIOR TO SAE 10/NOV/2010
     Route: 042
     Dates: start: 20100722
  4. DOCETAXEL [Suspect]
     Indication: BREAST CANCER
     Dosage: DATE OF LAST DOSE PRIOR TO SAE 10/NOV/2010
     Route: 042
     Dates: start: 20100722
  5. BEVACIZUMAB [Suspect]
     Indication: BREAST CANCER
     Dosage: DATE OF LAST DOSE PRIOR TO SAE 10/FEB/2011
     Route: 042
     Dates: start: 20100722

REACTIONS (1)
  - Acute leukaemia [Not Recovered/Not Resolved]
